FAERS Safety Report 10062196 (Version 1)
Quarter: 2014Q2

REPORT INFORMATION
  Report Type: Spontaneous
  Country: US (occurrence: IT)
  Receive Date: 20140407
  Receipt Date: 20140407
  Transmission Date: 20141212
  Serious: Yes (Other)
  Sender: FDA-Public Use
  Company Number: 2013SP006185

PATIENT
  Age: 49 Year
  Sex: Female

DRUGS (5)
  1. METHOTREXATE [Suspect]
     Indication: RHEUMATOID ARTHRITIS
     Route: 058
     Dates: start: 2010, end: 20130819
  2. REMICADE [Concomitant]
  3. METHYLPREDNISOLONE [Concomitant]
  4. LEDERFOLIN [Concomitant]
  5. DIBASE [Concomitant]

REACTIONS (2)
  - Hypoacusis [Unknown]
  - Rhinorrhoea [Unknown]
